FAERS Safety Report 10690304 (Version 1)
Quarter: 2015Q1

REPORT INFORMATION
  Report Type: Spontaneous
  Country: US (occurrence: US)
  Receive Date: 20150105
  Receipt Date: 20150105
  Transmission Date: 20150720
  Serious: Yes (Other)
  Sender: FDA-Public Use
  Company Number: US-PFIZER INC-2014362372

PATIENT
  Age: 58 Year
  Sex: Female

DRUGS (6)
  1. HYDROCHLOROTHIAZIDE/VALSARTAN [Concomitant]
     Dosage: UNK
  2. OMEPRAZOLE. [Concomitant]
     Active Substance: OMEPRAZOLE
     Dosage: UNK
  3. XELJANZ [Suspect]
     Active Substance: TOFACITINIB CITRATE
     Indication: PSORIATIC ARTHROPATHY
     Dosage: 5MG (1 TABLET) TWICE DAILY
     Route: 048
  4. METOPROLOL [Concomitant]
     Active Substance: METOPROLOL
     Dosage: UNK
  5. AMLODIPINE [Concomitant]
     Active Substance: AMLODIPINE BESYLATE
     Dosage: UNK
  6. CARBINOXAMINE [Concomitant]
     Active Substance: CARBINOXAMINE
     Dosage: UNK

REACTIONS (3)
  - Rheumatoid arthritis [Recovered/Resolved]
  - Back pain [Recovered/Resolved]
  - Disease recurrence [Recovered/Resolved]

NARRATIVE: CASE EVENT DATE: 20141210
